FAERS Safety Report 8522691-6 (Version None)
Quarter: 2012Q3

REPORT INFORMATION
  Report Type: 
  Country: None (occurrence: None)
  Receive Date: 20120719
  Receipt Date: 20120711
  Transmission Date: 20120928
  Serious: Yes (Other)
  Sender: FDA-Public Use
  Company Number: CA-VIIV HEALTHCARE LIMITED-A0984170A

PATIENT
  Age: 70 Year
  Sex: Male

DRUGS (6)
  1. RITONAVIR [Concomitant]
     Dosage: 100MG PER DAY
     Route: 065
  2. ANTI-HYPERLIPIDAEMIC (UNSPECIFIED) [Concomitant]
  3. ANTI HYPERTENSIVE [Concomitant]
  4. ABACAVIR SULFATE/LAMIVUDINE [Suspect]
     Indication: HIV INFECTION
     Route: 065
  5. ATAZANAVIR [Concomitant]
     Dosage: 300MG PER DAY
     Route: 065
  6. UNKNOWN MEDICATION [Concomitant]

REACTIONS (2)
  - CORONARY ARTERY OCCLUSION [None]
  - CHEST DISCOMFORT [None]
